FAERS Safety Report 7778070-2 (Version None)
Quarter: 2011Q3

REPORT INFORMATION
  Report Type: 
  Country: None (occurrence: None)
  Receive Date: 20110926
  Receipt Date: 20110920
  Transmission Date: 20111222
  Serious: Yes (Other)
  Sender: FDA-Public Use
  Company Number: JP-PFIZER INC-2011222180

PATIENT
  Sex: Male

DRUGS (2)
  1. CARTEOLOL HYDROCHLORIDE [Concomitant]
     Indication: NORMAL TENSION GLAUCOMA
  2. XALATAN [Suspect]
     Indication: NORMAL TENSION GLAUCOMA
     Dosage: UNK
     Route: 047
     Dates: start: 20060101

REACTIONS (1)
  - RETINAL VEIN OCCLUSION [None]
